FAERS Safety Report 19959619 (Version 1)
Quarter: 2021Q4

REPORT INFORMATION
  Report Type: Spontaneous
  Country: US (occurrence: US)
  Receive Date: 20211015
  Receipt Date: 20211015
  Transmission Date: 20220303
  Serious: Yes (Hospitalization)
  Sender: FDA-Public Use
  Company Number: None

PATIENT
  Age: 60 Year
  Sex: Male
  Weight: 170 kg

DRUGS (1)
  1. WARFARIN [Suspect]
     Active Substance: WARFARIN
     Indication: Deep vein thrombosis
     Route: 048
     Dates: start: 20200616, end: 20210706

REACTIONS (12)
  - Rectal haemorrhage [None]
  - Hypotension [None]
  - International normalised ratio increased [None]
  - Prothrombin time prolonged [None]
  - Transfusion [None]
  - Packed red blood cell transfusion [None]
  - Gastritis [None]
  - Large intestine polyp [None]
  - Rectal polyp [None]
  - Haemorrhoids [None]
  - Haemoglobin decreased [None]
  - Haematocrit decreased [None]

NARRATIVE: CASE EVENT DATE: 20210706
